FAERS Safety Report 10702568 (Version 4)
Quarter: 2015Q2

REPORT INFORMATION
  Report Type: Spontaneous
  Country: US (occurrence: US)
  Receive Date: 20150109
  Receipt Date: 20150403
  Transmission Date: 20150821
  Serious: No
  Sender: FDA-Public Use
  Company Number: US-PFIZER INC-2015005451

PATIENT
  Age: 73 Year
  Sex: Male

DRUGS (2)
  1. INLYTA [Suspect]
     Active Substance: AXITINIB
     Indication: RENAL CANCER STAGE IV
     Dosage: 1 DF, ALTERNATE DAY
  2. INLYTA [Suspect]
     Active Substance: AXITINIB
     Dosage: 2 DF, ALTERNATE DAY

REACTIONS (6)
  - Asthenia [Unknown]
  - Nocturia [Unknown]
  - Pain [Unknown]
  - Visual impairment [Unknown]
  - Aphonia [Unknown]
  - Fatigue [Unknown]
